FAERS Safety Report 8471188-0 (Version None)
Quarter: 2012Q2

REPORT INFORMATION
  Report Type: 
  Country: None (occurrence: None)
  Receive Date: 20120627
  Receipt Date: 20120613
  Transmission Date: 20120825
  Serious: Yes (Death, Other)
  Sender: FDA-Public Use
  Company Number: RU-RANBAXY-2010R3-38457

PATIENT
  Age: 43 Year
  Sex: Female
  Weight: 62 kg

DRUGS (2)
  1. SERTRALINE HYDROCHLORIDE [Suspect]
     Indication: AUTONOMIC NERVOUS SYSTEM IMBALANCE
     Dosage: 50 MG, QD
     Route: 048
     Dates: start: 20100920, end: 20100922
  2. MELOXICAM [Concomitant]
     Indication: OSTEOCHONDROSIS
     Dosage: UNK
     Route: 065
     Dates: start: 20100920, end: 20100922

REACTIONS (5)
  - PANCREATITIS CHRONIC [None]
  - DIARRHOEA [None]
  - CONDITION AGGRAVATED [None]
  - VOMITING [None]
  - NAUSEA [None]
